FAERS Safety Report 9836968 (Version 1)
Quarter: 2014Q1

REPORT INFORMATION
  Report Type: Spontaneous
  Country: US (occurrence: US)
  Receive Date: 20140123
  Receipt Date: 20140123
  Transmission Date: 20141002
  Serious: No
  Sender: FDA-Public Use
  Company Number: US-PFIZER INC-2014017265

PATIENT
  Sex: Male

DRUGS (1)
  1. CHANTIX [Suspect]
     Dosage: UNK
     Dates: start: 201401

REACTIONS (7)
  - Feeling abnormal [Unknown]
  - Insomnia [Unknown]
  - Nausea [Unknown]
  - Agitation [Unknown]
  - Hostility [Unknown]
  - Mental disorder [Unknown]
  - Depressed mood [Unknown]
